FAERS Safety Report 5914976-4 (Version None)
Quarter: 2008Q4

REPORT INFORMATION
  Report Type: 
  Country: None (occurrence: None)
  Receive Date: 20081010
  Receipt Date: 20080925
  Transmission Date: 20090506
  Serious: Yes (Other)
  Sender: FDA-Public Use
  Company Number: DE-GENENTECH-269068

PATIENT
  Sex: Female

DRUGS (5)
  1. AVASTIN [Suspect]
     Indication: BREAST CANCER METASTATIC
     Dosage: 300 MG, Q2W
     Route: 042
     Dates: start: 20070901
  2. TAXOTERE [Suspect]
     Indication: BREAST CANCER METASTATIC
     Dosage: 50 MG, 1/WEEK
     Route: 042
     Dates: start: 20070901
  3. HERCEPTIN [Concomitant]
     Indication: DRUG USE FOR UNKNOWN INDICATION
     Dosage: UNK
     Dates: start: 20060501, end: 20080901
  4. GRANOZYTE [Concomitant]
     Indication: DRUG USE FOR UNKNOWN INDICATION
  5. EPREX [Concomitant]
     Indication: DRUG USE FOR UNKNOWN INDICATION

REACTIONS (1)
  - PEMPHIGOID [None]
